FAERS Safety Report 7897259-5 (Version None)
Quarter: 2011Q4

REPORT INFORMATION
  Report Type: 
  Country: None (occurrence: None)
  Receive Date: 20111107
  Receipt Date: 20110907
  Transmission Date: 20120403
  Serious: No
  Sender: FDA-Public Use
  Company Number: US-GLAXOSMITHKLINE-A0943885A

PATIENT
  Sex: Male

DRUGS (1)
  1. VELTIN [Suspect]
     Indication: FOLLICULITIS
     Dosage: 1APP FOUR TIMES PER DAY
     Route: 061

REACTIONS (3)
  - OVERDOSE [None]
  - RASH [None]
  - ERYTHEMA [None]
